FAERS Safety Report 8326988-4 (Version None)
Quarter: 2012Q2

REPORT INFORMATION
  Report Type: 
  Country: None (occurrence: None)
  Receive Date: 20120501
  Receipt Date: 20120420
  Transmission Date: 20120825
  Serious: Yes (Other)
  Sender: FDA-Public Use
  Company Number: US-ROCHE-1022444

PATIENT
  Sex: Female
  Weight: 45.854 kg

DRUGS (4)
  1. ACCUTANE [Suspect]
     Indication: SKIN DISORDER
     Route: 065
     Dates: start: 19970101, end: 20020101
  2. DARVOCET [Concomitant]
  3. PAXIL [Concomitant]
  4. VICODIN [Concomitant]

REACTIONS (7)
  - DEPRESSION [None]
  - SUICIDAL IDEATION [None]
  - BIPOLAR DISORDER [None]
  - COLITIS ULCERATIVE [None]
  - INFLAMMATORY BOWEL DISEASE [None]
  - BORDERLINE PERSONALITY DISORDER [None]
  - POST-TRAUMATIC STRESS DISORDER [None]
